FAERS Safety Report 17193315 (Version 1)
Quarter: 2019Q4

REPORT INFORMATION
  Report Type: Report from Study
  Country: US (occurrence: US)
  Receive Date: 20191223
  Receipt Date: 20191223
  Transmission Date: 20200122
  Serious: Yes (Death)
  Sender: FDA-Public Use
  Company Number: US-ACTELION-A-NJ2019-193450

PATIENT
  Age: 74 Year
  Sex: Female

DRUGS (1)
  1. OPSUMIT [Suspect]
     Active Substance: MACITENTAN
     Indication: PULMONARY ARTERIAL HYPERTENSION
     Dosage: 10 MG, QD
     Route: 048
     Dates: start: 20190605

REACTIONS (5)
  - Dyspnoea [Not Recovered/Not Resolved]
  - Death [Fatal]
  - Fatigue [Recovering/Resolving]
  - Dyspnoea exertional [Unknown]
  - Product dose omission [Unknown]

NARRATIVE: CASE EVENT DATE: 20190605
